FAERS Safety Report 16943830 (Version 1)
Quarter: 2019Q4

REPORT INFORMATION
  Report Type: Spontaneous
  Country: CA (occurrence: CA)
  Receive Date: 20191022
  Receipt Date: 20191022
  Transmission Date: 20200122
  Serious: Yes (Other)
  Sender: FDA-Public Use
  Company Number: CA-TEVA-2019-CA-1125002

PATIENT
  Age: 15 Year
  Sex: Female

DRUGS (1)
  1. VINCRISTINE SULFATE. [Suspect]
     Active Substance: VINCRISTINE SULFATE
     Indication: MEDULLOBLASTOMA
     Route: 065

REACTIONS (3)
  - Neurotoxicity [Recovering/Resolving]
  - Off label use [Recovering/Resolving]
  - Product use in unapproved indication [Recovering/Resolving]
